FAERS Safety Report 10712062 (Version 3)
Quarter: 2015Q1

REPORT INFORMATION
  Report Type: Spontaneous
  Country: DE (occurrence: DE)
  Receive Date: 20150114
  Receipt Date: 20150326
  Transmission Date: 20150721
  Serious: Yes (Death, Hospitalization)
  Sender: FDA-Public Use
  Company Number: DE-ABBVIE-15P-062-1330218-00

PATIENT
  Sex: Male

DRUGS (1)
  1. DUODOPA [Suspect]
     Active Substance: CARBIDOPA\LEVODOPA
     Indication: PARKINSON^S DISEASE
     Dosage: MD 1.8 ML, CRD 2.4 ML/HR, CRN 1.8 ML/HR, ED 0.5 ML
     Route: 050
     Dates: start: 20130816

REACTIONS (7)
  - Pneumonia [Fatal]
  - Pneumonia aspiration [Not Recovered/Not Resolved]
  - Weight decreased [Not Recovered/Not Resolved]
  - Dysphagia [Not Recovered/Not Resolved]
  - Aggression [Unknown]
  - Pyrexia [Not Recovered/Not Resolved]
  - Hallucination [Unknown]
